FAERS Safety Report 19160937 (Version 1)
Quarter: 2021Q2

REPORT INFORMATION
  Report Type: Spontaneous
  Country: US (occurrence: US)
  Receive Date: 20210421
  Receipt Date: 20210421
  Transmission Date: 20210717
  Serious: No
  Sender: FDA-Public Use
  Company Number: US-CADILA HEALTHCARE LIMITED-US-ZYDUS-061123

PATIENT

DRUGS (2)
  1. MINOCYCLINE HYDROCHLORIDE 50 MILLIGRAM CAPSULE [Suspect]
     Active Substance: MINOCYCLINE HYDROCHLORIDE
     Indication: PRODUCT USED FOR UNKNOWN INDICATION
     Route: 048
  2. PFIZER?BIONTECH COVID?19 [Concomitant]
     Indication: COVID-19
     Dosage: UNK
     Dates: start: 20201229

REACTIONS (1)
  - Hypersensitivity [Unknown]
